FAERS Safety Report 5316701-7 (Version None)
Quarter: 2007Q2

REPORT INFORMATION
  Report Type: 
  Country: None (occurrence: None)
  Receive Date: 20070504
  Receipt Date: 20070425
  Transmission Date: 20071010
  Serious: Yes (Death, Life-Threatening, Other)
  Sender: FDA-Public Use
  Company Number: GB-JNJFOC-20070105063

PATIENT
  Sex: Female
  Weight: 60 kg

DRUGS (12)
  1. REMICADE [Suspect]
     Indication: RHEUMATOID ARTHRITIS
     Route: 042
  2. PREDNISOLONE [Concomitant]
  3. COMBIVENT [Concomitant]
  4. ESTRADERM [Concomitant]
  5. FRUSEMIDE [Concomitant]
  6. HYPROMELLOSE [Concomitant]
  7. IRBESARTAN [Concomitant]
  8. OMEPRAZOLE [Concomitant]
  9. PARACETAMOL [Concomitant]
  10. ROPINIROLE HCL [Concomitant]
  11. SERETIDE [Concomitant]
  12. TRAMADOL HCL [Concomitant]

REACTIONS (6)
  - ASTHMA [None]
  - BRONCHOPNEUMONIA [None]
  - LOWER RESPIRATORY TRACT INFECTION [None]
  - OSTEOPOROSIS [None]
  - RESPIRATORY FAILURE [None]
  - RHEUMATOID ARTHRITIS [None]
